FAERS Safety Report 9753504 (Version 2)
Quarter: 2013Q4

REPORT INFORMATION
  Report Type: Spontaneous
  Country: US (occurrence: US)
  Receive Date: 20131213
  Receipt Date: 20131216
  Transmission Date: 20140711
  Serious: No
  Sender: FDA-Public Use
  Company Number: US-TEVA-405109USA

PATIENT
  Age: 42 Year
  Sex: Female
  Weight: 73.09 kg

DRUGS (1)
  1. PARAGARD 380A [Suspect]
     Indication: CONTRACEPTION
     Route: 015
     Dates: start: 2006, end: 20130513

REACTIONS (3)
  - Medical device complication [Recovered/Resolved]
  - Bacterial test positive [Unknown]
  - Bacterial vaginosis [Unknown]
